FAERS Safety Report 5240280-6 (Version None)
Quarter: 2007Q1

REPORT INFORMATION
  Report Type: 
  Country: None (occurrence: None)
  Receive Date: 20061208
  Receipt Date: 20050204
  Transmission Date: 20070707
  Serious: Yes (Other)
  Sender: FDA-Public Use
  Company Number: 2005UW02040

PATIENT
  Age: 62 Year
  Sex: Female
  Weight: 56.699 kg

DRUGS (2)
  1. CRESTOR [Suspect]
     Indication: BLOOD CHOLESTEROL INCREASED
     Dosage: 10 MG HS PO
     Route: 048
  2. CELEBREX [Suspect]

REACTIONS (2)
  - DRUG INTERACTION [None]
  - RASH [None]
